FAERS Safety Report 4589826-1 (Version None)
Quarter: 2005Q1

REPORT INFORMATION
  Report Type: 
  Country: None (occurrence: None)
  Receive Date: 20050223
  Receipt Date: 20050215
  Transmission Date: 20050727
  Serious: Yes (Other)
  Sender: FDA-Public Use
  Company Number: DE-ABBOTT-05P-062-0291387-00

PATIENT
  Age: 71 Year
  Sex: Female

DRUGS (1)
  1. TRANDOLAPRIL [Suspect]
     Indication: DRUG USE FOR UNKNOWN INDICATION

REACTIONS (14)
  - ABDOMINAL PAIN [None]
  - ALKALOSIS [None]
  - ANAEMIA [None]
  - ANURIA [None]
  - ASTHENIA [None]
  - CIRCULATORY COLLAPSE [None]
  - CYANOSIS [None]
  - GASTRITIS [None]
  - HYPOKALAEMIA [None]
  - HYPOTENSION [None]
  - HYPOXIA [None]
  - RENAL FAILURE ACUTE [None]
  - VERTIGO [None]
  - VOMITING [None]
